FAERS Safety Report 17491018 (Version 2)
Quarter: 2020Q2

REPORT INFORMATION
  Report Type: Report from Study
  Country: US (occurrence: US)
  Receive Date: 20200303
  Receipt Date: 20200409
  Transmission Date: 20200713
  Serious: Yes (Other)
  Sender: FDA-Public Use
  Company Number: NVSC2020US058186

PATIENT
  Age: 39 Year
  Sex: Female

DRUGS (1)
  1. GILENYA [Suspect]
     Active Substance: FINGOLIMOD HYDROCHLORIDE
     Indication: RELAPSING-REMITTING MULTIPLE SCLEROSIS
     Dosage: 0.5 MG, QD
     Route: 048
     Dates: start: 20191203

REACTIONS (5)
  - Optic neuritis [Unknown]
  - Visual impairment [Unknown]
  - Fatigue [Recovering/Resolving]
  - Pain [Recovering/Resolving]
  - Sunburn [Unknown]

NARRATIVE: CASE EVENT DATE: 20200213
